FAERS Safety Report 9257405 (Version 1)
Quarter: 2013Q2

REPORT INFORMATION
  Report Type: Spontaneous
  Country: US (occurrence: US)
  Receive Date: 20130426
  Receipt Date: 20130426
  Transmission Date: 20140414
  Serious: No
  Sender: FDA-Public Use
  Company Number: US-PFIZER INC-2013128839

PATIENT
  Age: 29 Year
  Sex: Male
  Weight: 74.83 kg

DRUGS (3)
  1. PRISTIQ [Suspect]
     Indication: ANXIETY
     Dosage: 50 MG, 1X/DAY
     Route: 048
     Dates: start: 20120520
  2. SIMVASTATIN [Concomitant]
     Dosage: 20 MG, 1X/DAY
  3. ATIVAN [Concomitant]
     Indication: ANXIETY
     Dosage: 0.5 MG, AS NEEDED

REACTIONS (3)
  - Off label use [Not Recovered/Not Resolved]
  - Feeling of relaxation [Unknown]
  - Therapeutic response unexpected [Unknown]
